FAERS Safety Report 12824603 (Version 2)
Quarter: 2016Q4

REPORT INFORMATION
  Report Type: Spontaneous
  Country: HR (occurrence: HR)
  Receive Date: 20161007
  Receipt Date: 20161117
  Transmission Date: 20170207
  Serious: Yes (Hospitalization)
  Sender: FDA-Public Use
  Company Number: HR-NOVOPROD-512491

PATIENT
  Age: 73 Year
  Sex: Female
  Weight: 91 kg

DRUGS (7)
  1. SORTIS [Concomitant]
     Active Substance: ATORVASTATIN
     Indication: DIABETES MELLITUS
     Dosage: 40 MG, UNK
     Route: 048
  2. GLUFORMIN [Suspect]
     Active Substance: METFORMIN HYDROCHLORIDE
     Indication: DIABETES MELLITUS
     Dosage: 500 MG, BID
     Route: 048
     Dates: start: 20160610, end: 20160620
  3. NEBIVOLOL PLIVA [Concomitant]
     Active Substance: NEBIVOLOL HYDROCHLORIDE
     Indication: HYPERTENSION
     Dosage: 1 TBL
     Route: 048
  4. AMARYL [Suspect]
     Active Substance: GLIMEPIRIDE
     Indication: DIABETES MELLITUS
     Dosage: 2 MG, UNK
     Route: 048
     Dates: start: 20160610, end: 20160620
  5. PHYSIOTENS [Concomitant]
     Active Substance: MOXONIDINE
     Indication: HYPERTENSION
     Dosage: 0.4 MG, QD
     Route: 048
  6. VICTOZA [Suspect]
     Active Substance: LIRAGLUTIDE
     Indication: DIABETES MELLITUS
     Dosage: 0.6 MG, UNK
     Route: 058
     Dates: start: 20160610, end: 20160620
  7. DALNEVA [Concomitant]
     Indication: HYPERTENSION
     Dosage: 8 MG PERINDOPRIL TERT-BUTYLAMINE + 10 MG AMLODIPINE IN THE FORM OF AMLODIPINE BESYLATE
     Route: 048

REACTIONS (9)
  - Erysipelas [Unknown]
  - Urticaria [Recovered/Resolved]
  - Nausea [Recovered/Resolved]
  - Pruritus [Recovered/Resolved]
  - Abdominal pain [Recovered/Resolved]
  - Peripheral swelling [Recovered/Resolved]
  - Diarrhoea [Recovered/Resolved]
  - Vomiting [Recovered/Resolved]
  - Rash [Recovered/Resolved]

NARRATIVE: CASE EVENT DATE: 20160612
